FAERS Safety Report 10769900 (Version 1)
Quarter: 2015Q1

REPORT INFORMATION
  Report Type: Spontaneous
  Country: CH (occurrence: CH)
  Receive Date: 20150206
  Receipt Date: 20150206
  Transmission Date: 20150721
  Serious: Yes (Other)
  Sender: FDA-Public Use
  Company Number: CH-ASTRAZENECA-2015SE08634

PATIENT
  Age: 20684 Day
  Sex: Male

DRUGS (5)
  1. PRAVASTATIN [Suspect]
     Active Substance: PRAVASTATIN\PRAVASTATIN SODIUM
     Route: 048
     Dates: start: 20141028, end: 20141121
  2. BELOC ZOK [Concomitant]
     Active Substance: METOPROLOL SUCCINATE
     Route: 048
  3. NEXIUM [Suspect]
     Active Substance: ESOMEPRAZOLE MAGNESIUM
     Route: 048
     Dates: start: 20141111
  4. PERFALGAN [Suspect]
     Active Substance: ACETAMINOPHEN
     Route: 048
     Dates: start: 20141110, end: 20141118
  5. ASPIRIN CARDIO [Concomitant]
     Active Substance: ASPIRIN
     Route: 048
     Dates: start: 20141111

REACTIONS (1)
  - Cholestatic liver injury [Unknown]

NARRATIVE: CASE EVENT DATE: 20141111
